FAERS Safety Report 10096823 (Version 2)
Quarter: 2014Q2

REPORT INFORMATION
  Report Type: Spontaneous
  Country: CA (occurrence: CA)
  Receive Date: 20140422
  Receipt Date: 20140530
  Transmission Date: 20141212
  Serious: Yes (Life-Threatening, Hospitalization)
  Sender: FDA-Public Use
  Company Number: CA-ELI_LILLY_AND_COMPANY-CA201404005609

PATIENT
  Age: 59 Year
  Sex: Female
  Weight: 99.77 kg

DRUGS (2)
  1. HUMULIN 30% REGULAR, 70% NPH [Suspect]
     Indication: DIABETES MELLITUS
     Dosage: 22 DF, QD
     Route: 065
     Dates: start: 200002
  2. HUMULIN 30% REGULAR, 70% NPH [Suspect]
     Dosage: 16 DF, QD
     Route: 065
     Dates: start: 200002

REACTIONS (5)
  - Cardiac disorder [Unknown]
  - Fall [Unknown]
  - Hyperhidrosis [Unknown]
  - Loss of consciousness [Unknown]
  - Vomiting [Unknown]
